FAERS Safety Report 9859651 (Version 2)
Quarter: 2014Q1

REPORT INFORMATION
  Report Type: Spontaneous
  Country: US (occurrence: US)
  Receive Date: 20140131
  Receipt Date: 20140131
  Transmission Date: 20141002
  Serious: Yes (Death)
  Sender: FDA-Public Use
  Company Number: US-GE HEALTHCARE MEDICAL DIAGNOSTICS-OSCN-PR-0805S-0268

PATIENT
  Sex: Male
  Weight: 133.79 kg

DRUGS (48)
  1. OMNISCAN [Suspect]
     Indication: COMPRESSION FRACTURE
     Route: 042
     Dates: start: 20030326, end: 20030326
  2. GADOLINIUM (UNSPECIFIED) [Suspect]
     Indication: PRODUCT USED FOR UNKNOWN INDICATION
     Dates: start: 20010417, end: 20010417
  3. GADOLINIUM (UNSPECIFIED) [Suspect]
     Indication: PRODUCT USED FOR UNKNOWN INDICATION
     Dates: start: 20011022, end: 20011022
  4. GADOLINIUM (UNSPECIFIED) [Suspect]
     Indication: PRODUCT USED FOR UNKNOWN INDICATION
     Dates: start: 20011108, end: 20011108
  5. GADOLINIUM (UNSPECIFIED) [Suspect]
     Indication: PRODUCT USED FOR UNKNOWN INDICATION
     Dates: start: 20021222, end: 20021222
  6. GADOLINIUM (UNSPECIFIED) [Suspect]
     Indication: PRODUCT USED FOR UNKNOWN INDICATION
     Dates: start: 20021223, end: 20021223
  7. GADOLINIUM (UNSPECIFIED) [Suspect]
     Indication: PRODUCT USED FOR UNKNOWN INDICATION
     Dates: start: 20021226, end: 20021226
  8. GADOLINIUM (UNSPECIFIED) [Suspect]
     Indication: PRODUCT USED FOR UNKNOWN INDICATION
     Dates: start: 20021230, end: 20021230
  9. GADOLINIUM (UNSPECIFIED) [Suspect]
     Indication: PRODUCT USED FOR UNKNOWN INDICATION
     Dates: start: 20030305, end: 20030305
  10. GADOLINIUM (UNSPECIFIED) [Suspect]
     Indication: PRODUCT USED FOR UNKNOWN INDICATION
     Dates: start: 20030707, end: 20030707
  11. GADOLINIUM (UNSPECIFIED) [Suspect]
     Indication: PRODUCT USED FOR UNKNOWN INDICATION
     Dates: start: 20030824, end: 20030824
  12. GADOLINIUM (UNSPECIFIED) [Suspect]
     Indication: PRODUCT USED FOR UNKNOWN INDICATION
     Dates: start: 20031208, end: 20031208
  13. GADOLINIUM (UNSPECIFIED) [Suspect]
     Indication: DIZZINESS
     Dates: start: 20010731, end: 20010731
  14. GADOLINIUM (UNSPECIFIED) [Suspect]
     Indication: ABDOMINAL PAIN UPPER
     Dates: start: 20050323, end: 20050323
  15. GADOLINIUM (UNSPECIFIED) [Suspect]
     Indication: SPINAL COMPRESSION FRACTURE
     Dates: start: 20030605, end: 20030605
  16. GADOLINIUM (UNSPECIFIED) [Suspect]
     Indication: PRODUCT USED FOR UNKNOWN INDICATION
     Dates: start: 20010214, end: 20010214
  17. GADOLINIUM (UNSPECIFIED) [Suspect]
     Indication: COMPRESSION FRACTURE
     Dates: start: 20030326, end: 20030326
  18. MAGNEVIST [Suspect]
     Indication: PAIN
     Route: 042
     Dates: start: 20021220, end: 20021220
  19. MAGNEVIST [Suspect]
     Indication: PAIN
     Dates: start: 20030117, end: 20030117
  20. MAGNEVIST [Suspect]
     Indication: PRODUCT USED FOR UNKNOWN INDICATION
     Dates: start: 20030326, end: 20030326
  21. MAGNEVIST [Suspect]
     Indication: DIZZINESS
     Dates: start: 20010731, end: 20010731
  22. MAGNEVIST [Suspect]
     Indication: SPINAL COMPRESSION FRACTURE
     Dates: start: 20030605, end: 20030605
  23. MAGNEVIST [Suspect]
     Indication: BACK PAIN
     Dates: start: 20030820, end: 20030820
  24. MAGNEVIST [Suspect]
     Indication: BACK PAIN
     Dates: start: 20031208, end: 20031208
  25. MAGNEVIST [Suspect]
     Indication: ABDOMINAL PAIN UPPER
     Dates: start: 20050323, end: 20050323
  26. OPTIMARK [Suspect]
     Indication: COMPRESSION FRACTURE
     Dates: start: 20030326, end: 20030326
  27. PROHANCE [Suspect]
     Indication: COMPRESSION FRACTURE
     Dates: start: 20030326, end: 20030326
  28. MULTIHANCE [Suspect]
     Indication: COMPRESSION FRACTURE
     Dates: start: 20030326, end: 20030326
  29. HYDROCHLOROTHIAZIDE [Concomitant]
  30. BLOPRESS PLUS [Concomitant]
  31. ZOCOR [Concomitant]
  32. SIMVASTATIN [Concomitant]
  33. DIOVAN [Concomitant]
  34. ALTEPLASE [Concomitant]
  35. SEVELAMER [Concomitant]
  36. INSULIN [Concomitant]
  37. COUMADIN [Concomitant]
  38. VERAPAMIL [Concomitant]
  39. ATACAND [Concomitant]
  40. TOPROL XL [Concomitant]
  41. ALTACE [Concomitant]
  42. ATACAND [Concomitant]
  43. NEPHROCAPS [Concomitant]
  44. NORVASC [Concomitant]
  45. ULTRAM [Concomitant]
  46. EPOGEN [Concomitant]
  47. NEURONTIN [Concomitant]
  48. IRON [Concomitant]

REACTIONS (1)
  - Nephrogenic systemic fibrosis [Fatal]
